FAERS Safety Report 19645973 (Version 2)
Quarter: 2022Q1

REPORT INFORMATION
  Report Type: Spontaneous
  Country: FR (occurrence: FR)
  Receive Date: 20210802
  Receipt Date: 20220219
  Transmission Date: 20220423
  Serious: Yes (Death)
  Sender: FDA-Public Use
  Company Number: None

PATIENT
  Age: 65 Year
  Sex: Female
  Weight: 76 kg

DRUGS (4)
  1. PACLITAXEL [Suspect]
     Active Substance: PACLITAXEL
     Indication: Invasive ductal breast carcinoma
     Dosage: NOT REPORTED
     Route: 041
     Dates: start: 20210218, end: 20210514
  2. TOZINAMERAN [Suspect]
     Active Substance: TOZINAMERAN
     Indication: COVID-19 immunisation
     Route: 030
     Dates: start: 20210408, end: 20210408
  3. BARACLUDE [Concomitant]
     Active Substance: ENTECAVIR
  4. LEVOTHYROXINE [Concomitant]
     Active Substance: LEVOTHYROXINE
     Dosage: STRENGTH: 75 MICROGRAMS, SCORED TABLET

REACTIONS (1)
  - Capillary leak syndrome [Fatal]

NARRATIVE: CASE EVENT DATE: 20210427
